FAERS Safety Report 22859369 (Version 4)
Quarter: 2023Q4

REPORT INFORMATION
  Report Type: Report from Study
  Country: US (occurrence: US)
  Receive Date: 20230824
  Receipt Date: 20231107
  Transmission Date: 20240110
  Serious: No
  Sender: FDA-Public Use
  Company Number: US-SA-SAC20230822000131

PATIENT
  Age: 64 Year
  Sex: Female
  Weight: 90.7 kg

DRUGS (2)
  1. DUPILUMAB [Suspect]
     Active Substance: DUPILUMAB
     Indication: Neurodermatitis
     Dosage: 600 MG, 1X
     Route: 058
  2. DUPILUMAB [Suspect]
     Active Substance: DUPILUMAB
     Indication: Nasal polyps
     Dosage: 300 MG, QOW
     Route: 058
     Dates: start: 20230808

REACTIONS (10)
  - Injection site pain [Unknown]
  - Neurodermatitis [Not Recovered/Not Resolved]
  - Pruritus [Not Recovered/Not Resolved]
  - Rash [Not Recovered/Not Resolved]
  - Skin swelling [Not Recovered/Not Resolved]
  - Product dose omission issue [Not Recovered/Not Resolved]
  - Contusion [Not Recovered/Not Resolved]
  - Scratch [Not Recovered/Not Resolved]
  - Erythema [Not Recovered/Not Resolved]
  - Pain of skin [Not Recovered/Not Resolved]
